FAERS Safety Report 19075849 (Version 4)
Quarter: 2022Q2

REPORT INFORMATION
  Report Type: Spontaneous
  Country: CA (occurrence: CA)
  Receive Date: 20210331
  Receipt Date: 20220408
  Transmission Date: 20220721
  Serious: Yes (Life-Threatening, Hospitalization, Disabling, Other)
  Sender: FDA-Public Use
  Company Number: CA-009507513-2103CAN007658

PATIENT
  Age: 56 Year
  Sex: Female
  Weight: 69 kg

DRUGS (20)
  1. JANUVIA [Suspect]
     Active Substance: SITAGLIPTIN PHOSPHATE
     Dosage: 100.0 MILLIGRAM, 1 EVERY 1 DAYS
     Route: 048
  2. JANUMET [Suspect]
     Active Substance: METFORMIN HYDROCHLORIDE\SITAGLIPTIN PHOSPHATE
     Indication: Product used for unknown indication
     Dosage: 850.0 MILLIGRAM, 3 EVERY 1 DAYS
     Route: 048
  3. JANUMET [Suspect]
     Active Substance: METFORMIN HYDROCHLORIDE\SITAGLIPTIN PHOSPHATE
     Indication: Hypertension
  4. ASPIRIN [Suspect]
     Active Substance: ASPIRIN
     Indication: Product used for unknown indication
     Dosage: 80.0 MILLIGRAM, 1 EVERY 1 DAYS
     Route: 048
  5. ALISKIREN HEMIFUMARATE [Suspect]
     Active Substance: ALISKIREN HEMIFUMARATE
     Indication: Hypertension
     Dosage: 150.0 MILLIGRAM, 1 EVERY 1 DAYS
     Route: 048
  6. ALISKIREN HEMIFUMARATE [Suspect]
     Active Substance: ALISKIREN HEMIFUMARATE
     Indication: Microalbuminuria
  7. ALISKIREN HEMIFUMARATE [Suspect]
     Active Substance: ALISKIREN HEMIFUMARATE
     Indication: Off label use
  8. AMLODIPINE BESYLATE [Suspect]
     Active Substance: AMLODIPINE BESYLATE
     Indication: Product used for unknown indication
     Dosage: 5.0 MILLIGRAM, 1 EVERY 1 DAYS
     Route: 048
  9. AMLODIPINE BESYLATE [Suspect]
     Active Substance: AMLODIPINE BESYLATE
     Dosage: 50.0 MILLIGRAM, 1 EVERY 1 DAYS
     Route: 048
  10. AMLODIPINE BESYLATE [Suspect]
     Active Substance: AMLODIPINE BESYLATE
     Dosage: 5.0 GRAM, 1 EVERY 1 DAYS
     Route: 048
  11. ESOMEPRAZOLE MAGNESIUM [Suspect]
     Active Substance: ESOMEPRAZOLE MAGNESIUM
     Indication: Product used for unknown indication
     Dosage: 40.0 MILLIGRAM, 1 EVERY 1 DAYS
     Route: 048
  12. IRBESARTAN [Suspect]
     Active Substance: IRBESARTAN
     Indication: Hypertension
     Dosage: 300.0 MILLIGRAM, 1 EVERY 1 DAYS
     Route: 048
  13. LIPITOR [Suspect]
     Active Substance: ATORVASTATIN CALCIUM
     Indication: Product used for unknown indication
     Dosage: 20.0 MILLIGRAM, 1 EVERY 1 DAYS
     Route: 048
  14. METFORMIN HYDROCHLORIDE [Suspect]
     Active Substance: METFORMIN HYDROCHLORIDE
     Indication: Product used for unknown indication
     Dosage: 85 MILLIGRAM, 3 EVERY 1 DAYS
     Route: 065
  15. METFORMIN HYDROCHLORIDE [Suspect]
     Active Substance: METFORMIN HYDROCHLORIDE
     Dosage: 850.0 MILLIGRAM, 3 EVERY 1 DAYS
     Route: 048
  16. IRBESARTAN [Suspect]
     Active Substance: IRBESARTAN
     Indication: Hypertension
     Dosage: 300.0 MILLIGRAM, 1 EVERY 1 DAYS
     Route: 048
  17. AVAPRO [Concomitant]
     Active Substance: IRBESARTAN
     Dosage: UNK
     Route: 065
  18. CYANOCOBALAMIN [Concomitant]
     Active Substance: CYANOCOBALAMIN
     Indication: Hypertension
     Dosage: 1.0 DOSAGE FORMS
     Route: 048
  19. ESOMEPRAZOLE [Concomitant]
     Active Substance: ESOMEPRAZOLE
     Indication: Product used for unknown indication
     Dosage: 40.0 MILLIGRAM
     Route: 065
  20. METFORMIN [Concomitant]
     Active Substance: METFORMIN HYDROCHLORIDE
     Dosage: UNK
     Route: 065

REACTIONS (23)
  - Adjustment disorder [Recovered/Resolved with Sequelae]
  - Affect lability [Recovered/Resolved with Sequelae]
  - Anxiety [Recovered/Resolved with Sequelae]
  - Aphasia [Recovered/Resolved with Sequelae]
  - Asthenia [Recovered/Resolved with Sequelae]
  - Carotid artery thrombosis [Recovered/Resolved with Sequelae]
  - Cerebrovascular accident [Recovered/Resolved with Sequelae]
  - Confusional state [Recovered/Resolved with Sequelae]
  - Coordination abnormal [Recovered/Resolved with Sequelae]
  - Dysarthria [Recovered/Resolved with Sequelae]
  - Dysphagia [Unknown]
  - Eating disorder [Recovered/Resolved with Sequelae]
  - Fall [Recovered/Resolved with Sequelae]
  - Hemiparesis [Recovered/Resolved with Sequelae]
  - Hemiplegia [Recovered/Resolved with Sequelae]
  - Impaired work ability [Recovered/Resolved with Sequelae]
  - Motor dysfunction [Recovered/Resolved with Sequelae]
  - Muscle spasticity [Recovered/Resolved with Sequelae]
  - Muscular weakness [Recovered/Resolved with Sequelae]
  - Nausea [Recovered/Resolved with Sequelae]
  - Neurologic neglect syndrome [Recovered/Resolved with Sequelae]
  - Personality disorder [Recovered/Resolved with Sequelae]
  - Sensory loss [Recovered/Resolved with Sequelae]
